FAERS Safety Report 9164723 (Version 2)
Quarter: 2013Q3

REPORT INFORMATION
  Report Type: Spontaneous
  Country: JP (occurrence: None)
  Receive Date: 20130226
  Receipt Date: 20130701
  Transmission Date: 20140515
  Serious: Yes (Life-Threatening, Hospitalization)
  Sender: FDA-Public Use
  Company Number: ABR_00838_2013

PATIENT
  Age: 71 Year
  Sex: Female
  Weight: 37 kg

DRUGS (1)
  1. GLIADEL [Suspect]
     Indication: MALIGNANT GLIOMA
     Dosage: (8 DF, [8 WAFERS IMPLANTED] INTRACEREBRAL)
     Dates: start: 20130204, end: 20130204

REACTIONS (8)
  - Depressed level of consciousness [None]
  - Hemiplegia [None]
  - Gaze palsy [None]
  - Brain oedema [None]
  - Brain midline shift [None]
  - Neoplasm [None]
  - Condition aggravated [None]
  - Quadriplegia [None]
